FAERS Safety Report 14142973 (Version 1)
Quarter: 2017Q4

REPORT INFORMATION
  Report Type: Spontaneous
  Country: DE (occurrence: DE)
  Receive Date: 20171030
  Receipt Date: 20171030
  Transmission Date: 20180321
  Serious: Yes (Other)
  Sender: FDA-Public Use
  Company Number: DE-JNJFOC-20171027214

PATIENT
  Sex: Male

DRUGS (2)
  1. RISPERDAL CONSTA [Suspect]
     Active Substance: RISPERIDONE
     Indication: SCHIZOPHRENIA
     Route: 030
  2. RISPERDAL [Suspect]
     Active Substance: RISPERIDONE
     Indication: SCHIZOPHRENIA
     Dosage: DOSE 2 MG TO 3 MG
     Route: 048

REACTIONS (6)
  - Malabsorption [Unknown]
  - Antipsychotic drug level below therapeutic [Not Recovered/Not Resolved]
  - Depression [Unknown]
  - Extrapyramidal disorder [Recovered/Resolved]
  - Feeling abnormal [Not Recovered/Not Resolved]
  - Rheumatic disorder [Not Recovered/Not Resolved]
